FAERS Safety Report 17182394 (Version 6)
Quarter: 2020Q1

REPORT INFORMATION
  Report Type: Spontaneous
  Country: US (occurrence: US)
  Receive Date: 20191220
  Receipt Date: 20200216
  Transmission Date: 20200409
  Serious: No
  Sender: FDA-Public Use
  Company Number: US-BIOGEN-2019BI00819040

PATIENT
  Age: 40 Year
  Sex: Female

DRUGS (1)
  1. TYSABRI [Suspect]
     Active Substance: NATALIZUMAB
     Indication: MULTIPLE SCLEROSIS
     Dosage: INFUSED OVER 1 HOUR
     Route: 065
     Dates: start: 20161212

REACTIONS (11)
  - Panic attack [Unknown]
  - Sensory disturbance [Unknown]
  - Incontinence [Unknown]
  - Vomiting [Recovered/Resolved]
  - Headache [Unknown]
  - Gait disturbance [Not Recovered/Not Resolved]
  - Inappropriate schedule of product administration [Unknown]
  - Mental disorder [Unknown]
  - Malaise [Unknown]
  - Decreased immune responsiveness [Unknown]
  - Nasopharyngitis [Unknown]

NARRATIVE: CASE EVENT DATE: 201812
